FAERS Safety Report 7549101-X (Version None)
Quarter: 2011Q2

REPORT INFORMATION
  Report Type: 
  Country: None (occurrence: None)
  Receive Date: 20110615
  Receipt Date: 20110609
  Transmission Date: 20111010
  Serious: Yes (Other)
  Sender: FDA-Public Use
  Company Number: US-JNJFOC-20100805547

PATIENT
  Sex: Female

DRUGS (3)
  1. MORPHINE SULFATE [Concomitant]
     Indication: PAIN
     Dates: start: 20090101
  2. PERCOCET [Concomitant]
     Indication: PAIN
     Dates: start: 20090101
  3. LEVAQUIN [Suspect]
     Indication: PNEUMONIA
     Route: 048
     Dates: start: 20090526, end: 20090601

REACTIONS (3)
  - TENDONITIS [None]
  - TENDON RUPTURE [None]
  - TENOSYNOVITIS [None]
